FAERS Safety Report 7742441-0 (Version None)
Quarter: 2011Q3

REPORT INFORMATION
  Report Type: 
  Country: None (occurrence: None)
  Receive Date: 20110830
  Receipt Date: 20110819
  Transmission Date: 20111222
  Serious: Yes (Hospitalization, Disabling)
  Sender: FDA-Public Use
  Company Number: 2010SP050757

PATIENT
  Age: 33 Year
  Sex: Female
  Weight: 58.9676 kg

DRUGS (5)
  1. PROVENTIL [Concomitant]
  2. CENTRUM [Concomitant]
  3. FERROUS SULFATE TAB [Concomitant]
  4. NUVARING [Suspect]
     Indication: CONTRACEPTION
  5. VITAMIN B-12 [Concomitant]

REACTIONS (13)
  - ARTHRALGIA [None]
  - LIGAMENT RUPTURE [None]
  - DEEP VEIN THROMBOSIS [None]
  - MENISCUS LESION [None]
  - BRONCHITIS [None]
  - IMPAIRED WORK ABILITY [None]
  - DYSPNOEA [None]
  - ABDOMINAL PAIN UPPER [None]
  - JOINT SWELLING [None]
  - FALL [None]
  - HYPOTENSION [None]
  - BLADDER DISCOMFORT [None]
  - GASTRITIS [None]
